FAERS Safety Report 23519815 (Version 2)
Quarter: 2024Q1

REPORT INFORMATION
  Report Type: Report from Study
  Country: CA (occurrence: CA)
  Receive Date: 20240213
  Receipt Date: 20240222
  Transmission Date: 20240410
  Serious: Yes (Other)
  Sender: FDA-Public Use
  Company Number: CA-ABBVIE-5638198

PATIENT
  Sex: Male

DRUGS (3)
  1. LUPRON DEPOT [Suspect]
     Active Substance: LEUPROLIDE ACETATE
     Indication: Prostate cancer
     Route: 030
     Dates: start: 20201203
  2. VITAMIN D [Concomitant]
     Active Substance: VITAMIN D NOS
     Indication: Osteoporosis
  3. VITAMIN D [Concomitant]
     Active Substance: VITAMIN D NOS
     Indication: Osteoporosis

REACTIONS (13)
  - Cataract [Unknown]
  - Electric shock sensation [Unknown]
  - Asthenia [Unknown]
  - Feeling of body temperature change [Unknown]
  - Muscular weakness [Unknown]
  - Pain [Unknown]
  - Bone erosion [Unknown]
  - Prostate cancer recurrent [Unknown]
  - Fall [Unknown]
  - Unevaluable event [Unknown]
  - Injection site pain [Unknown]
  - Walking aid user [Unknown]
  - Therapeutic response shortened [Unknown]
